FAERS Safety Report 14229429 (Version 1)
Quarter: 2017Q4

REPORT INFORMATION
  Report Type: Spontaneous
  Country: US (occurrence: None)
  Receive Date: 20171126
  Receipt Date: 20171126
  Transmission Date: 20180321
  Serious: Yes (Life-Threatening)
  Sender: FDA-Public Use
  Company Number: None

PATIENT
  Age: 67 Year
  Sex: Male

DRUGS (1)
  1. DAPTOMYCIN. [Suspect]
     Active Substance: DAPTOMYCIN
     Indication: INFECTION
     Route: 042
     Dates: start: 20170726, end: 20170726

REACTIONS (4)
  - Angioedema [None]
  - Wheezing [None]
  - Ear swelling [None]
  - Pharyngeal oedema [None]

NARRATIVE: CASE EVENT DATE: 20170726
